FAERS Safety Report 6060145-X (Version None)
Quarter: 2009Q1

REPORT INFORMATION
  Report Type: 
  Country: None (occurrence: None)
  Receive Date: 20090128
  Receipt Date: 20090122
  Transmission Date: 20090719
  Serious: Yes (Other)
  Sender: FDA-Public Use
  Company Number: TUK2009A00016

PATIENT
  Age: 88 Year
  Sex: Female

DRUGS (7)
  1. ACTOS [Suspect]
     Indication: DIABETES MELLITUS
     Dosage: (30 MG) ORAL
     Route: 048
     Dates: start: 20081203
  2. WARFARIN SODIUM [Suspect]
     Dosage: ORAL
     Route: 048
  3. AMLODIPINE [Concomitant]
  4. DIGOXIN [Concomitant]
  5. GLICLAZIDE (GLICLAZIDE) [Concomitant]
  6. LISINOPRIL [Concomitant]
  7. SIMVASTATIN [Concomitant]

REACTIONS (2)
  - DRUG INTERACTION [None]
  - INTERNATIONAL NORMALISED RATIO DECREASED [None]
